FAERS Safety Report 6807340-7 (Version None)
Quarter: 2010Q2

REPORT INFORMATION
  Report Type: 
  Country: None (occurrence: None)
  Receive Date: 20100629
  Receipt Date: 20081006
  Transmission Date: 20101027
  Serious: No
  Sender: FDA-Public Use
  Company Number: US-PFIZER INC-2008076450

PATIENT
  Sex: Female

DRUGS (1)
  1. MEDROL [Suspect]
     Indication: DERMATITIS CONTACT
     Dates: start: 20080904

REACTIONS (7)
  - DIARRHOEA [None]
  - EXTRASYSTOLES [None]
  - FLATULENCE [None]
  - HYPERSENSITIVITY [None]
  - MUSCLE SPASMS [None]
  - POOR QUALITY SLEEP [None]
  - RASH MACULAR [None]
